FAERS Safety Report 4452216-6 (Version None)
Quarter: 2004Q3

REPORT INFORMATION
  Report Type: 
  Country: None (occurrence: None)
  Receive Date: 20040916
  Receipt Date: 20040916
  Transmission Date: 20050211
  Serious: Yes (Hospitalization)
  Sender: FDA-Public Use
  Company Number: None

PATIENT
  Age: 81 Year
  Sex: Male
  Weight: 83 kg

DRUGS (2)
  1. LOVENOX [Suspect]
     Indication: DEEP VENOUS THROMBOSIS PROPHYLAXIS
     Dosage: 30MG  Q12H  SUBCUTANEOUS
     Route: 058
     Dates: start: 20040823, end: 20040831
  2. LOVENOX [Suspect]
     Indication: KNEE ARTHROPLASTY
     Dosage: 30MG  Q12H  SUBCUTANEOUS
     Route: 058
     Dates: start: 20040823, end: 20040831

REACTIONS (2)
  - POST PROCEDURAL COMPLICATION [None]
  - PULMONARY EMBOLISM [None]
